FAERS Safety Report 21688803 (Version 1)
Quarter: 2022Q4

REPORT INFORMATION
  Report Type: Spontaneous
  Country: US (occurrence: None)
  Receive Date: 20221205
  Receipt Date: 20221205
  Transmission Date: 20230112
  Serious: Yes (Hospitalization)
  Sender: FDA-Public Use
  Company Number: None

PATIENT
  Age: 70 Year
  Sex: Male

DRUGS (3)
  1. TACROLIMUS [Suspect]
     Active Substance: TACROLIMUS
     Indication: Heart transplant
     Dosage: FREQUENCY : TWICE A DAY;?
     Route: 048
     Dates: start: 20180913
  2. PRAVASTATIN [Concomitant]
     Active Substance: PRAVASTATIN
     Dates: start: 20180913
  3. PREDNISONE [Concomitant]
     Active Substance: PREDNISONE
     Dates: start: 20220511

REACTIONS (1)
  - Surgery [None]

NARRATIVE: CASE EVENT DATE: 20221205
